FAERS Safety Report 9001086 (Version 3)
Quarter: 2013Q2

REPORT INFORMATION
  Report Type: Spontaneous
  Country: US (occurrence: US)
  Receive Date: 20130107
  Receipt Date: 20130402
  Transmission Date: 20140414
  Serious: No
  Sender: FDA-Public Use
  Company Number: US-009507513-1301USA001906

PATIENT
  Age: 59 Year
  Sex: Female
  Weight: 58.5 kg

DRUGS (4)
  1. PEG-INTRON [Suspect]
     Indication: HEPATITIS C
     Dosage: REDIPEN, 80 MICROGRAM, QW
     Route: 058
     Dates: start: 20100104, end: 20130218
  2. RIBASPHERE [Suspect]
     Dosage: UNK
  3. TELAPREVIR [Suspect]
  4. LYRICA [Concomitant]

REACTIONS (2)
  - Nasopharyngitis [Not Recovered/Not Resolved]
  - Fatigue [Recovered/Resolved]
